FAERS Safety Report 11117655 (Version 3)
Quarter: 2015Q2

REPORT INFORMATION
  Report Type: Spontaneous
  Country: NO (occurrence: NO)
  Receive Date: 20150517
  Receipt Date: 20150607
  Transmission Date: 20150821
  Serious: Yes (Other)
  Sender: FDA-Public Use
  Company Number: NO-AMGEN-NORSP2009000620

PATIENT
  Age: 20 Year
  Sex: Male

DRUGS (9)
  1. REMICADE [Suspect]
     Active Substance: INFLIXIMAB
     Indication: PSORIASIS
     Dosage: 300 MG, UNK
     Route: 042
     Dates: start: 200803
  2. RAPTIVA [Suspect]
     Active Substance: EFALIZUMAB
     Indication: PSORIASIS
     Dosage: 0.7 MG/KG, WEEKLY
     Route: 042
     Dates: start: 200808
  3. RAPTIVA [Suspect]
     Active Substance: EFALIZUMAB
     Dosage: 1.0 MG/KG, WEEKLY
     Route: 042
     Dates: end: 200903
  4. ENBREL [Suspect]
     Active Substance: ETANERCEPT
     Indication: PSORIASIS
     Dosage: 50 MG, WEEKLY
     Route: 065
     Dates: start: 200903
  5. METHOTREXATE [Concomitant]
     Active Substance: METHOTREXATE
     Indication: PSORIASIS
     Dosage: 10MG/WEEK, SOMETIMES 15MG/WEEK
     Route: 048
     Dates: start: 2003, end: 2007
  6. ENBREL [Suspect]
     Active Substance: ETANERCEPT
     Dosage: 50 MG, 2 TIMES/WK
     Route: 065
  7. NEOTIGASON [Concomitant]
     Active Substance: ACITRETIN
     Indication: PSORIASIS
     Dosage: 275 MG, WEEKLY
     Route: 048
     Dates: start: 2007, end: 200803
  8. METHOTREXATE [Concomitant]
     Active Substance: METHOTREXATE
     Dosage: 5 MG, WEEKLY
     Route: 048
     Dates: end: 200804
  9. SANDIMMUNE [Suspect]
     Active Substance: CYCLOSPORINE
     Indication: PSORIASIS
     Dosage: 100 MG, 2X/DAY
     Route: 065
     Dates: start: 2008, end: 2008

REACTIONS (1)
  - Ewing^s sarcoma [Unknown]
